FAERS Safety Report 4555432-8 (Version None)
Quarter: 2005Q1

REPORT INFORMATION
  Report Type: 
  Country: None (occurrence: None)
  Receive Date: 20050118
  Receipt Date: 20050118
  Transmission Date: 20050727
  Serious: Yes (Hospitalization)
  Sender: FDA-Public Use
  Company Number: None

PATIENT
  Age: 92 Year
  Sex: Female
  Weight: 54.4316 kg

DRUGS (10)
  1. CIPRO [Suspect]
     Indication: URINARY TRACT INFECTION
     Dosage: 500MG TABS  1/DAY FOR 5 DAY ORAL
     Route: 048
     Dates: start: 20041209, end: 20041212
  2. HYDROCHLOROTHIAZIDE [Concomitant]
  3. CALCIUM CITRATE [Concomitant]
  4. METAMUCIL-2 [Concomitant]
  5. MULTI-VITAMIN [Concomitant]
  6. D-MANNOSE [Concomitant]
  7. GLUCOSAMINE SULFATE [Concomitant]
  8. SENOKOT [Concomitant]
  9. STOOL SOFTENER [Concomitant]
  10. OXAZEPAM [Concomitant]

REACTIONS (6)
  - DIFFICULTY IN WALKING [None]
  - DYSSTASIA [None]
  - GROIN PAIN [None]
  - INJURY [None]
  - MOVEMENT DISORDER [None]
  - PAIN [None]
